FAERS Safety Report 14519707 (Version 3)
Quarter: 2023Q1

REPORT INFORMATION
  Report Type: Report from Study
  Country: US (occurrence: US)
  Receive Date: 20180212
  Receipt Date: 20230314
  Transmission Date: 20230418
  Serious: Yes (Hospitalization, Other)
  Sender: FDA-Public Use
  Company Number: US-SERONO NORDIC A.B.-236240K07USA

PATIENT
  Age: 56 Year
  Sex: Female
  Weight: 127 kg

DRUGS (3)
  1. REBIF [Suspect]
     Active Substance: INTERFERON BETA-1A
     Indication: Multiple sclerosis
     Route: 058
     Dates: start: 20040109
  2. REBIF [Suspect]
     Active Substance: INTERFERON BETA-1A
     Route: 058
     Dates: start: 2005
  3. PAXIL [Concomitant]
     Active Substance: PAROXETINE HYDROCHLORIDE
     Indication: Stress

REACTIONS (8)
  - Coronary artery occlusion [Unknown]
  - Chest pain [Recovered/Resolved]
  - Hot flush [Unknown]
  - Chills [Unknown]
  - Catheter site haematoma [Recovered/Resolved]
  - Catheter site swelling [Recovered/Resolved]
  - Catheter site bruise [Recovered/Resolved]
  - Injury associated with device [Unknown]

NARRATIVE: CASE EVENT DATE: 20070719
